FAERS Safety Report 10756699 (Version 1)
Quarter: 2015Q1

REPORT INFORMATION
  Report Type: Report from Study
  Country: MX (occurrence: MX)
  Receive Date: 20150202
  Receipt Date: 20150202
  Transmission Date: 20150721
  Serious: Yes (Hospitalization)
  Sender: FDA-Public Use
  Company Number: PHHY2015MX012554

PATIENT
  Sex: Female

DRUGS (4)
  1. ONBREZ BREEZHALER [Suspect]
     Active Substance: INDACATEROL
     Indication: CHRONIC OBSTRUCTIVE PULMONARY DISEASE
     Dosage: 2-3 DF, QD
     Route: 065
  2. INSULIN [Concomitant]
     Active Substance: INSULIN NOS
     Indication: PRODUCT USED FOR UNKNOWN INDICATION
     Dosage: 25 IU, UNK
     Route: 065
  3. LOSARTAN [Concomitant]
     Active Substance: LOSARTAN
     Indication: PRODUCT USED FOR UNKNOWN INDICATION
     Dosage: 2 OT, QD
     Route: 065
  4. GALVUS [Suspect]
     Active Substance: VILDAGLIPTIN
     Indication: PRODUCT USED FOR UNKNOWN INDICATION
     Dosage: 1 DF, QD (IN THE MORNING)
     Route: 065

REACTIONS (11)
  - Memory impairment [Unknown]
  - Blood pressure increased [Unknown]
  - Communication disorder [Unknown]
  - Blood pressure decreased [Unknown]
  - Pneumonia [Unknown]
  - Chest X-ray abnormal [Not Recovered/Not Resolved]
  - Blood glucose increased [Unknown]
  - Hearing impaired [Unknown]
  - Lung infection [Not Recovered/Not Resolved]
  - Cough [Unknown]
  - Nausea [Unknown]
